FAERS Safety Report 12943113 (Version 1)
Quarter: 2016Q4

REPORT INFORMATION
  Report Type: Spontaneous
  Country: US (occurrence: US)
  Receive Date: 20161115
  Receipt Date: 20161115
  Transmission Date: 20170207
  Serious: Yes (Hospitalization)
  Sender: FDA-Public Use
  Company Number: US-MALLINCKRODT-T201605644

PATIENT
  Age: 66 Year
  Sex: Female

DRUGS (13)
  1. ASPIRIN. [Concomitant]
     Active Substance: ASPIRIN
  2. METOPROLOL. [Concomitant]
     Active Substance: METOPROLOL
  3. VITAMIN D3 [Concomitant]
     Active Substance: CHOLECALCIFEROL
  4. H.P. ACTHAR [Suspect]
     Active Substance: CORTICOTROPIN
     Indication: SARCOIDOSIS
     Dosage: 1 ML TWO TIMES WEEKLY
     Route: 058
     Dates: start: 20160628
  5. HUMALOG [Concomitant]
     Active Substance: INSULIN LISPRO
  6. POTASSIUM [Concomitant]
     Active Substance: POTASSIUM
  7. BENICAR [Concomitant]
     Active Substance: OLMESARTAN MEDOXOMIL
  8. PREDNISONE. [Concomitant]
     Active Substance: PREDNISONE
  9. ISOSORB [Concomitant]
  10. LANTUS [Concomitant]
     Active Substance: INSULIN GLARGINE
  11. DIGOX [Concomitant]
     Active Substance: DIGOXIN
  12. XARELTO [Concomitant]
     Active Substance: RIVAROXABAN
  13. ZETIA [Concomitant]
     Active Substance: EZETIMIBE

REACTIONS (2)
  - Syncope [Not Recovered/Not Resolved]
  - Dizziness [Not Recovered/Not Resolved]

NARRATIVE: CASE EVENT DATE: 201609
